FAERS Safety Report 4439614-1 (Version None)
Quarter: 2004Q3

REPORT INFORMATION
  Report Type: 
  Country: None (occurrence: None)
  Receive Date: 20040901
  Receipt Date: 20040901
  Transmission Date: 20050211
  Serious: Yes (Hospitalization)
  Sender: FDA-Public Use
  Company Number: None

PATIENT
  Sex: Female
  Weight: 111.1313 kg

DRUGS (2)
  1. AMBIEN [Suspect]
     Indication: SOMNOLENCE
     Dosage: 5 MG PO QHS/QHS PRN [PRIOR TO ADMISSION]
     Route: 048
  2. ZOLOFT [Concomitant]

REACTIONS (4)
  - CONVERSION DISORDER [None]
  - CRYING [None]
  - MENTAL STATUS CHANGES [None]
  - OVERDOSE [None]
